FAERS Safety Report 14900117 (Version 1)
Quarter: 2018Q2

REPORT INFORMATION
  Report Type: Spontaneous
  Country: FR (occurrence: FR)
  Receive Date: 20180516
  Receipt Date: 20180516
  Transmission Date: 20180711
  Serious: Yes (Other)
  Sender: FDA-Public Use
  Company Number: FR-MERCK KGAA-2047886

PATIENT
  Age: 45 Year
  Sex: Female

DRUGS (4)
  1. NOVOTHYROX [Suspect]
     Active Substance: LEVOTHYROXINE SODIUM
  2. NOVOTHYROX [Suspect]
     Active Substance: LEVOTHYROXINE SODIUM
     Indication: POST PROCEDURAL HYPOTHYROIDISM
  3. UN-ALFA [Concomitant]
     Active Substance: ALFACALCIDOL
  4. LYRICA [Concomitant]
     Active Substance: PREGABALIN

REACTIONS (17)
  - Muscular weakness [None]
  - Dizziness [None]
  - Extrasystoles [None]
  - Myalgia [None]
  - Muscle spasms [None]
  - Insomnia [None]
  - Fatigue [None]
  - Malaise [None]
  - Blood pressure fluctuation [None]
  - Mental fatigue [None]
  - Loss of consciousness [None]
  - Palpitations [None]
  - Pain [None]
  - Loss of personal independence in daily activities [None]
  - Alopecia [None]
  - Disturbance in attention [None]
  - Asthenia [None]

NARRATIVE: CASE EVENT DATE: 2017
